FAERS Safety Report 6930426-3 (Version None)
Quarter: 2010Q3

REPORT INFORMATION
  Report Type: 
  Country: None (occurrence: None)
  Receive Date: 20100818
  Receipt Date: 20100809
  Transmission Date: 20110219
  Serious: Yes (Other)
  Sender: FDA-Public Use
  Company Number: US-PFIZER INC-2010092712

PATIENT
  Sex: Female
  Weight: 60.317 kg

DRUGS (6)
  1. ZITHROMAX [Suspect]
     Indication: BRONCHITIS
     Dosage: UNK MG, UNK
     Route: 048
     Dates: start: 20100621, end: 20100625
  2. CRESTOR [Concomitant]
  3. COLACE [Concomitant]
  4. BENADRYL [Concomitant]
  5. MELATONIN [Concomitant]
  6. FISH OIL [Concomitant]

REACTIONS (4)
  - AGEUSIA [None]
  - ANOSMIA [None]
  - EATING DISORDER [None]
  - MENTAL IMPAIRMENT [None]
